FAERS Safety Report 8820936 (Version 2)
Quarter: 2013Q1

REPORT INFORMATION
  Report Type: Spontaneous
  Country: JP (occurrence: JP)
  Receive Date: 20121002
  Receipt Date: 20130205
  Transmission Date: 20140127
  Serious: Yes (Hospitalization)
  Sender: FDA-Public Use
  Company Number: JP-009507513-1209JPN011964

PATIENT
  Age: 61 Year
  Sex: Female

DRUGS (4)
  1. BONALON [Suspect]
     Indication: OSTEOPOROSIS
     Dosage: 35 MG, QW
     Route: 048
     Dates: start: 20111107, end: 20121004
  2. SALAGEN TABLETS [Concomitant]
     Indication: SJOGREN^S SYNDROME
     Dosage: 5 MILLIGRAM /DAY
     Route: 048
     Dates: start: 20071115
  3. THYRADIN-S [Concomitant]
     Dosage: 200 MICROGRAM/DAY
     Route: 048
     Dates: start: 20040427
  4. MAGNESIUM OXIDE [Concomitant]
     Dosage: 2000 MILLIGRAM/DAY
     Route: 048
     Dates: start: 20020116

REACTIONS (1)
  - Gastric cancer [Recovering/Resolving]
